FAERS Safety Report 6032803-4 (Version None)
Quarter: 2009Q1

REPORT INFORMATION
  Report Type: 
  Country: None (occurrence: None)
  Receive Date: 20090109
  Receipt Date: 20081230
  Transmission Date: 20090719
  Serious: Yes (Other)
  Sender: FDA-Public Use
  Company Number: IT-JNJCH-2009000260

PATIENT

DRUGS (2)
  1. ASPIRIN [Suspect]
     Indication: ANTIPLATELET THERAPY
     Dosage: TEXT:100 MG DAILY FOR MORE THAN 24 HOURS
     Route: 065
  2. PLATELET AGGREGATION INHIBITORS [Suspect]
     Indication: ANTIPLATELET THERAPY
     Dosage: TEXT:UNSPECIFIED
     Route: 065

REACTIONS (1)
  - INFLAMMATORY BOWEL DISEASE [None]
